FAERS Safety Report 9761207 (Version 3)
Quarter: 2014Q2

REPORT INFORMATION
  Report Type: Report from Study
  Country: JP (occurrence: JP)
  Receive Date: 20131216
  Receipt Date: 20140529
  Transmission Date: 20141212
  Serious: Yes (Other)
  Sender: FDA-Public Use
  Company Number: JP-TAKEDA-2013TJP003506

PATIENT
  Age: 74 Year
  Sex: Male
  Weight: 68 kg

DRUGS (9)
  1. ALOGLIPTIN [Suspect]
     Indication: TYPE 2 DIABETES MELLITUS
     Dosage: 12.5 MG, QD
     Route: 048
     Dates: start: 20111207, end: 20130312
  2. BLOPRESS [Concomitant]
     Indication: ACUTE MYOCARDIAL INFARCTION
     Dosage: 4 MG, 1 DAYS
     Route: 048
     Dates: start: 20120606
  3. TAKEPRON OD TABLETS 15 [Concomitant]
     Indication: PROPHYLAXIS
     Dosage: 15 MG, QD
     Route: 048
     Dates: start: 20111104
  4. AMARYL [Concomitant]
     Indication: TYPE 2 DIABETES MELLITUS
     Dosage: 1 MG, 1 DAYS
     Route: 048
     Dates: start: 20111116, end: 20120803
  5. BAYASPIRIN [Concomitant]
     Indication: ACUTE MYOCARDIAL INFARCTION
     Dosage: 200 MG, 1 DAYS
     Route: 048
     Dates: start: 20111105
  6. PLAVIX [Concomitant]
     Indication: ACUTE MYOCARDIAL INFARCTION
     Dosage: 75 MG, 1 DAYS
     Route: 048
     Dates: start: 20111105
  7. PASTARON [Concomitant]
     Indication: SEBORRHOEIC DERMATITIS
     Dosage: UNK, PRN
     Route: 062
     Dates: start: 20111104
  8. PASTARON [Concomitant]
     Indication: ECZEMA ASTEATOTIC
  9. PRAVASTATIN NA [Concomitant]
     Indication: ACUTE MYOCARDIAL INFARCTION
     Dosage: 5 MG, 1 DAYS
     Route: 048
     Dates: start: 20111109

REACTIONS (1)
  - Interstitial lung disease [Unknown]
